FAERS Safety Report 6816097-5 (Version None)
Quarter: 2010Q3

REPORT INFORMATION
  Report Type: 
  Country: None (occurrence: None)
  Receive Date: 20100705
  Receipt Date: 20100623
  Transmission Date: 20110219
  Serious: Yes (Other)
  Sender: FDA-Public Use
  Company Number: US-RB-012466-10

PATIENT
  Age: 84 Year
  Sex: Female

DRUGS (1)
  1. DELSYM COUGH SYRUP [Suspect]
     Indication: COUGH
     Route: 048
     Dates: start: 20100613

REACTIONS (1)
  - HALLUCINATION [None]
